FAERS Safety Report 13289271 (Version 7)
Quarter: 2017Q2

REPORT INFORMATION
  Report Type: Spontaneous
  Country: NZ (occurrence: NZ)
  Receive Date: 20170303
  Receipt Date: 20170614
  Transmission Date: 20170830
  Serious: Yes (Other)
  Sender: FDA-Public Use
  Company Number: NZ-BEH-2016070453

PATIENT
  Age: 24 Year
  Sex: Female
  Weight: 73 kg

DRUGS (34)
  1. INTRAGAM P [Suspect]
     Active Substance: HUMAN IMMUNOGLOBULIN G
     Dosage: 12 G, UNK
     Route: 042
     Dates: start: 20170123, end: 20170124
  2. INTRAGAM P [Suspect]
     Active Substance: HUMAN IMMUNOGLOBULIN G
     Dosage: 3 G, UNK
     Route: 042
     Dates: start: 20160731, end: 20160804
  3. INTRAGAM P [Suspect]
     Active Substance: HUMAN IMMUNOGLOBULIN G
     Dosage: 3 G, UNK
     Route: 042
     Dates: start: 20170123, end: 20170124
  4. PRIVIGEN [Suspect]
     Active Substance: HUMAN IMMUNOGLOBULIN G
     Dosage: 20 G X 2 BOTTLES
     Route: 065
  5. INTRAGAM P [Suspect]
     Active Substance: HUMAN IMMUNOGLOBULIN G
     Indication: CHRONIC INFLAMMATORY DEMYELINATING POLYRADICULONEUROPATHY
     Dosage: 3 G, UNK
     Route: 042
     Dates: start: 20160614, end: 20160619
  6. INTRAGAM P [Suspect]
     Active Substance: HUMAN IMMUNOGLOBULIN G
     Dosage: 6 UNK, UNK
     Route: 042
     Dates: start: 20170429
  7. INTRAGAM P [Suspect]
     Active Substance: HUMAN IMMUNOGLOBULIN G
     Dosage: 12 G, UNK
     Route: 042
     Dates: start: 20160928, end: 20160929
  8. INTRAGAM P [Suspect]
     Active Substance: HUMAN IMMUNOGLOBULIN G
     Dosage: 3 G, UNK
     Route: 042
     Dates: start: 20161227, end: 20161228
  9. INTRAGAM P [Suspect]
     Active Substance: HUMAN IMMUNOGLOBULIN G
     Dosage: 12 UNK, UNK
     Route: 065
     Dates: start: 20170124
  10. PREDNISONE. [Concomitant]
     Active Substance: PREDNISONE
     Indication: NAUSEA
  11. AMITRIPTYLINE [Concomitant]
     Active Substance: AMITRIPTYLINE
  12. INTRAGAM P [Suspect]
     Active Substance: HUMAN IMMUNOGLOBULIN G
     Dosage: 3 G, UNK
     Route: 042
     Dates: start: 20160928, end: 20160929
  13. INTRAGAM P [Suspect]
     Active Substance: HUMAN IMMUNOGLOBULIN G
     Dosage: 12 G, UNK
     Route: 042
     Dates: start: 20161031, end: 20161101
  14. INTRAGAM P [Suspect]
     Active Substance: HUMAN IMMUNOGLOBULIN G
     Dosage: 12 G, UNK
     Route: 042
     Dates: start: 20161227, end: 20161228
  15. INTRAGAM P [Suspect]
     Active Substance: HUMAN IMMUNOGLOBULIN G
     Dosage: 15 UNK, UNK
     Route: 042
     Dates: start: 20170328
  16. INTRAGAM P [Suspect]
     Active Substance: HUMAN IMMUNOGLOBULIN G
     Dosage: 6 UNK, UNK
     Route: 042
     Dates: start: 20170508
  17. PREDNISONE. [Concomitant]
     Active Substance: PREDNISONE
     Indication: HEADACHE
     Dosage: 30 MG, UNK
     Route: 048
     Dates: start: 20160619, end: 20160621
  18. PRIVIGEN [Suspect]
     Active Substance: HUMAN IMMUNOGLOBULIN G
     Indication: CHRONIC INFLAMMATORY DEMYELINATING POLYRADICULONEUROPATHY
     Dosage: 30 G, TOT
     Route: 065
     Dates: start: 20170220, end: 20170220
  19. PRIVIGEN [Suspect]
     Active Substance: HUMAN IMMUNOGLOBULIN G
     Dosage: 5 G X 2 BOTTLES
     Route: 065
  20. INTRAGAM P [Suspect]
     Active Substance: HUMAN IMMUNOGLOBULIN G
     Dosage: 3 G, UNK
     Route: 042
     Dates: start: 20160901, end: 20160902
  21. INTRAGAM P [Suspect]
     Active Substance: HUMAN IMMUNOGLOBULIN G
     Dosage: 15 UNK, UNK
     Route: 042
     Dates: start: 20170327
  22. INTRAGAM P [Suspect]
     Active Substance: HUMAN IMMUNOGLOBULIN G
     Dosage: 12 G, UNK
     Route: 042
     Dates: start: 20160731, end: 20160804
  23. INTRAGAM P [Suspect]
     Active Substance: HUMAN IMMUNOGLOBULIN G
     Dosage: 3 G, UNK
     Route: 042
     Dates: start: 20161128, end: 20161129
  24. INTRAGAM P [Suspect]
     Active Substance: HUMAN IMMUNOGLOBULIN G
     Dosage: 24 G, UNK
     Route: 042
     Dates: start: 20170508
  25. PRIVIGEN [Suspect]
     Active Substance: HUMAN IMMUNOGLOBULIN G
     Dosage: 5 G X 2 BOTTLES
     Route: 065
  26. INTRAGAM P [Suspect]
     Active Substance: HUMAN IMMUNOGLOBULIN G
     Dosage: 12 G, UNK
     Route: 042
     Dates: start: 20160614, end: 20160619
  27. INTRAGAM P [Suspect]
     Active Substance: HUMAN IMMUNOGLOBULIN G
     Dosage: 12 G, UNK
     Route: 042
     Dates: start: 20160901, end: 20160902
  28. INTRAGAM P [Suspect]
     Active Substance: HUMAN IMMUNOGLOBULIN G
     Dosage: 3 G, UNK
     Route: 042
     Dates: start: 20161031, end: 20161101
  29. INTRAGAM P [Suspect]
     Active Substance: HUMAN IMMUNOGLOBULIN G
     Dosage: 12 G, UNK
     Route: 042
     Dates: start: 20161128, end: 20161129
  30. INTRAGAM P [Suspect]
     Active Substance: HUMAN IMMUNOGLOBULIN G
     Dosage: 60 G, UNK
     Route: 042
  31. INTRAGAM P [Suspect]
     Active Substance: HUMAN IMMUNOGLOBULIN G
     Dosage: 24 G, UNK
     Route: 042
     Dates: start: 20170429
  32. FLUOXETINE [Concomitant]
     Active Substance: FLUOXETINE HYDROCHLORIDE
     Indication: DEPRESSION
     Dosage: 40 MG, OD
     Route: 048
     Dates: start: 20160512
  33. PRIVIGEN [Suspect]
     Active Substance: HUMAN IMMUNOGLOBULIN G
     Dosage: 20 G, UNK
     Route: 065
  34. PRIVIGEN [Suspect]
     Active Substance: HUMAN IMMUNOGLOBULIN G
     Dosage: 50 G, TOT
     Route: 065
     Dates: start: 20170221, end: 20170221

REACTIONS (33)
  - Headache [Recovered/Resolved]
  - Photophobia [Unknown]
  - Abdominal pain [Unknown]
  - Vaginal haemorrhage [Unknown]
  - Flank pain [Unknown]
  - Headache [Unknown]
  - Malaise [Recovered/Resolved]
  - Pain [Recovered/Resolved]
  - Chronic inflammatory demyelinating polyradiculoneuropathy [Unknown]
  - Fatigue [Recovered/Resolved]
  - Syncope [Unknown]
  - Abdominal injury [Unknown]
  - Fall [Unknown]
  - Photophobia [Unknown]
  - Hyperacusis [Unknown]
  - Peripheral swelling [Unknown]
  - Migraine [Unknown]
  - Nausea [Unknown]
  - Dizziness [Unknown]
  - Headache [Unknown]
  - Road traffic accident [Unknown]
  - Arthralgia [Unknown]
  - Vaginal haemorrhage [Unknown]
  - Vomiting [Recovered/Resolved]
  - Vomiting [Unknown]
  - Headache [Unknown]
  - Swelling face [Unknown]
  - Orthostatic hypotension [Unknown]
  - Migraine [Recovered/Resolved]
  - Photophobia [Recovered/Resolved]
  - Nausea [Recovered/Resolved]
  - Headache [Unknown]
  - Vaginal haemorrhage [Unknown]

NARRATIVE: CASE EVENT DATE: 2016
